FAERS Safety Report 10920490 (Version 1)
Quarter: 2015Q1

REPORT INFORMATION
  Report Type: Spontaneous
  Country: US (occurrence: US)
  Receive Date: 20150317
  Receipt Date: 20150317
  Transmission Date: 20150721
  Serious: No
  Sender: FDA-Public Use
  Company Number: US-ASTRAZENECA-2015SE22651

PATIENT
  Age: 71 Year
  Sex: Female
  Weight: 48.5 kg

DRUGS (4)
  1. TOPROL XL [Suspect]
     Active Substance: METOPROLOL SUCCINATE
     Indication: HEART RATE INCREASED
     Route: 048
     Dates: start: 2005
  2. CALCIUM [Concomitant]
     Active Substance: CALCIUM
     Indication: GINGIVAL DISORDER
     Route: 048
     Dates: start: 1975
  3. HALF MULTI VITAMIN [Concomitant]
     Route: 048
     Dates: start: 1995
  4. CALCIUM [Concomitant]
     Active Substance: CALCIUM
     Indication: MILK ALLERGY
     Route: 048
     Dates: start: 1975

REACTIONS (3)
  - Off label use [Unknown]
  - Product use issue [Unknown]
  - Pain in extremity [Unknown]

NARRATIVE: CASE EVENT DATE: 2005
